FAERS Safety Report 5862481-6 (Version None)
Quarter: 2008Q3

REPORT INFORMATION
  Report Type: 
  Country: None (occurrence: None)
  Receive Date: 20080828
  Receipt Date: 20071116
  Transmission Date: 20090109
  Serious: Yes (Other)
  Sender: FDA-Public Use
  Company Number: US-BAYER-200714578BWH

PATIENT
  Age: 55 Year
  Sex: Female
  Weight: 68 kg

DRUGS (3)
  1. AVELOX [Suspect]
     Indication: SINUSITIS
     Dosage: TOTAL DAILY DOSE: 400 MG  UNIT DOSE: 400 MG
     Route: 048
     Dates: start: 20071115, end: 20071115
  2. HYDROCHLOROTHIAZIDE [Concomitant]
     Indication: HYPERTENSION
     Dosage: TOTAL DAILY DOSE: 25 MG
     Dates: start: 20050101
  3. METFORMIN HCL [Concomitant]
     Indication: DIABETES MELLITUS
     Dosage: TOTAL DAILY DOSE: 1700 MG  UNIT DOSE: 850 MG
     Dates: start: 20050101

REACTIONS (14)
  - ANAPHYLACTIC SHOCK [None]
  - BURNING SENSATION [None]
  - CONFUSIONAL STATE [None]
  - DIZZINESS [None]
  - EAR PRURITUS [None]
  - EYE SWELLING [None]
  - GENERALISED ERYTHEMA [None]
  - HYPERSENSITIVITY [None]
  - LIP SWELLING [None]
  - PRURITUS [None]
  - PRURITUS GENERALISED [None]
  - TINNITUS [None]
  - URTICARIA [None]
  - VISUAL ACUITY REDUCED [None]
